FAERS Safety Report 6401628-X (Version None)
Quarter: 2009Q4

REPORT INFORMATION
  Report Type: 
  Country: None (occurrence: None)
  Receive Date: 20091015
  Receipt Date: 20091005
  Transmission Date: 20100525
  Serious: Yes (Disabling, Other)
  Sender: FDA-Public Use
  Company Number: US-PFIZER INC-2005050463

PATIENT
  Sex: Female

DRUGS (10)
  1. PROVERA [Suspect]
     Indication: HORMONE REPLACEMENT THERAPY
     Dosage: UNK
     Route: 048
     Dates: start: 19880926, end: 19980601
  2. MEDROXYPROGESTERONE AND MEDROXYPROGESTERONE ACETATE [Suspect]
     Indication: HORMONE REPLACEMENT THERAPY
     Route: 048
  3. DEPO-ESTRADIOL [Suspect]
     Indication: HORMONE REPLACEMENT THERAPY
     Dosage: UNK
     Route: 051
     Dates: start: 19820801, end: 19980601
  4. OGEN [Suspect]
     Indication: HORMONE REPLACEMENT THERAPY
     Dosage: 1.25 MG, UNK
     Dates: start: 19860101, end: 19980601
  5. PREMARIN [Suspect]
     Indication: HORMONE REPLACEMENT THERAPY
     Dosage: 1.25 MG, UNK
     Dates: start: 19820101, end: 19830801
  6. PREMARIN [Suspect]
     Dosage: 0.9 MG, UNK
     Dates: start: 19840601, end: 19860101
  7. ESTRACE [Suspect]
     Indication: HORMONE REPLACEMENT THERAPY
  8. ESTRATEST [Suspect]
     Indication: HORMONE REPLACEMENT THERAPY
     Dosage: 2 MG, UNK
     Dates: start: 19830801, end: 19840601
  9. DELESTROGEN [Suspect]
     Indication: HORMONE REPLACEMENT THERAPY
     Dosage: UNK
     Route: 051
     Dates: start: 19820801, end: 19980601
  10. DIOVANE [Concomitant]
     Indication: HYPERTENSION
     Dosage: UNK
     Dates: start: 19950101

REACTIONS (2)
  - BREAST CANCER FEMALE [None]
  - THROMBOSIS [None]
